FAERS Safety Report 6448152-6 (Version None)
Quarter: 2009Q4

REPORT INFORMATION
  Report Type: 
  Country: None (occurrence: None)
  Receive Date: 20091120
  Receipt Date: 20091111
  Transmission Date: 20100525
  Serious: Yes (Death)
  Sender: FDA-Public Use
  Company Number: JP-NOVOPROD-268398

PATIENT
  Sex: Male
  Weight: 74 kg

DRUGS (4)
  1. NOVOSEVEN [Suspect]
     Indication: HAEMORRHAGE
     Dosage: 9.6 MG, UNK
     Route: 042
     Dates: start: 20070901, end: 20071003
  2. ENDOXAN                            /00021101/ [Concomitant]
     Dosage: 50 MG DAILY PO
     Route: 048
     Dates: start: 20070903, end: 20090907
  3. PREDNISOLONE [Concomitant]
     Dosage: 5 MG X 14 DAILY PO
     Route: 048
     Dates: start: 20070827, end: 20071005
  4. KOGENATE                           /00286701/ [Concomitant]
     Indication: HAEMOSTASIS
     Dosage: IV
     Route: 042
     Dates: start: 20070906, end: 20070915

REACTIONS (3)
  - PNEUMONIA [None]
  - RENAL FAILURE [None]
  - SHOCK HAEMORRHAGIC [None]
